FAERS Safety Report 7788195-3 (Version None)
Quarter: 2011Q3

REPORT INFORMATION
  Report Type: 
  Country: None (occurrence: None)
  Receive Date: 20110929
  Receipt Date: 20110929
  Transmission Date: 20111222
  Serious: Yes (Other)
  Sender: FDA-Public Use
  Company Number: None

PATIENT
  Age: 64 Year
  Sex: Male

DRUGS (2)
  1. LISTERINE ZERO MOUTHWASH CLEAN MINT (ORAL CARE PRODUCTS) UNSPECIFIED [Suspect]
     Indication: DENTAL DISORDER PROPHYLAXIS
     Dosage: USED 4 OR 5 TIMES AND POURED IN HIS CUPPED HANDS
  2. RANITIDINE HYDROCHLORIDE [Concomitant]

REACTIONS (4)
  - SWOLLEN TONGUE [None]
  - STOMATITIS [None]
  - CONDITION AGGRAVATED [None]
  - OEDEMA MOUTH [None]
